FAERS Safety Report 24289021 (Version 1)
Quarter: 2024Q3

REPORT INFORMATION
  Report Type: Report from Study
  Country: PL (occurrence: PL)
  Receive Date: 20240906
  Receipt Date: 20240906
  Transmission Date: 20241016
  Serious: Yes (Hospitalization)
  Sender: ABBVIE
  Company Number: PL-ABBVIE-5905567

PATIENT
  Age: 72 Year
  Sex: Female

DRUGS (4)
  1. CARBIDOPA\LEVODOPA [Suspect]
     Active Substance: CARBIDOPA\LEVODOPA
     Indication: Parkinson^s disease
     Dosage: DUODOPA: 06:00  A.M . -22:00 (10 P.M.) CONTINUOUS INFUSION 4.8 ML/H, MORNING DOSE 11 ML AND 22:00...
     Route: 050
     Dates: start: 20220620, end: 202407
  2. CARBIDOPA\LEVODOPA [Suspect]
     Active Substance: CARBIDOPA\LEVODOPA
  3. AMIKACIN [Concomitant]
     Active Substance: AMIKACIN
     Indication: Stoma site infection
     Dates: start: 2024
  4. CEFTRIAXONE [Concomitant]
     Active Substance: CEFTRIAXONE\CEFTRIAXONE SODIUM
     Indication: Stoma site infection
     Dates: start: 2024

REACTIONS (14)
  - Imaging procedure artifact [Unknown]
  - Anaemia [Unknown]
  - Stoma site inflammation [Recovered/Resolved]
  - Blood alkaline phosphatase increased [Unknown]
  - Stoma site oedema [Recovered/Resolved]
  - Bacterial test positive [Unknown]
  - Stoma site discharge [Unknown]
  - White blood cells urine positive [Unknown]
  - Gamma-glutamyltransferase increased [Unknown]
  - Stoma site abscess [Unknown]
  - Stoma site infection [Recovered/Resolved]
  - Stoma site infection [Unknown]
  - Stoma site candida [Recovered/Resolved]
  - Biliary dilatation [Unknown]

NARRATIVE: CASE EVENT DATE: 20240101
